FAERS Safety Report 16877648 (Version 1)
Quarter: 2019Q4

REPORT INFORMATION
  Report Type: Spontaneous
  Country: US (occurrence: US)
  Receive Date: 20191002
  Receipt Date: 20191002
  Transmission Date: 20200122
  Serious: No
  Sender: FDA-Public Use
  Company Number: US-PFIZER INC-2019423565

PATIENT
  Age: 48 Year
  Sex: Female
  Weight: 80.74 kg

DRUGS (3)
  1. LYRICA [Suspect]
     Active Substance: PREGABALIN
     Indication: PAIN
     Dosage: 75 MG, 3X/DAY (ONE IN THE MORNING, ONE AT NOON AND ONE AT NIGHT)
  2. LYRICA [Suspect]
     Active Substance: PREGABALIN
     Indication: NEUROPATHY PERIPHERAL
  3. LYRICA [Suspect]
     Active Substance: PREGABALIN
     Indication: PERONEAL NERVE PALSY
     Dosage: 150 MG, 2X/DAY (75MG 2 PILLS AT NIGHT AND 2 PILLS DURING THE DAY)

REACTIONS (3)
  - Drug ineffective [Unknown]
  - Inflammation [Unknown]
  - Peripheral vascular disorder [Unknown]
